FAERS Safety Report 14794464 (Version 2)
Quarter: 2018Q2

REPORT INFORMATION
  Report Type: Spontaneous
  Country: HU (occurrence: HU)
  Receive Date: 20180423
  Receipt Date: 20180517
  Transmission Date: 20180711
  Serious: Yes (Hospitalization, Other)
  Sender: FDA-Public Use
  Company Number: HU-PFIZER INC-2018160163

PATIENT
  Sex: Male

DRUGS (3)
  1. CISPLATIN. [Suspect]
     Active Substance: CISPLATIN
     Indication: SQUAMOUS CELL CARCINOMA
     Dosage: UNK, CYCLIC (5 CYCLE OF COMBINATION CHEMOTHERAPY)
     Dates: start: 20131001, end: 20140104
  2. IPILIMUMAB [Suspect]
     Active Substance: IPILIMUMAB
     Indication: SQUAMOUS CELL CARCINOMA
     Dosage: UNK, CYCLIC (5 CYCLE OF COMBINATION CHEMOTHERAPY)
     Dates: start: 20131001, end: 20140104
  3. PACLITAXEL. [Suspect]
     Active Substance: PACLITAXEL
     Indication: SQUAMOUS CELL CARCINOMA
     Dosage: UNK, CYCLIC (5 CYCLE OF COMBINATION CHEMOTHERAPY)
     Dates: start: 20131001, end: 20140104

REACTIONS (4)
  - Cerebral haemorrhage [Unknown]
  - Neoplasm progression [Unknown]
  - Polyneuropathy [Unknown]
  - Type 1 diabetes mellitus [Unknown]

NARRATIVE: CASE EVENT DATE: 201608
